FAERS Safety Report 23431382 (Version 1)
Quarter: 2024Q1

REPORT INFORMATION
  Report Type: Spontaneous
  Country: US (occurrence: US)
  Receive Date: 20240123
  Receipt Date: 20240123
  Transmission Date: 20240410
  Serious: No
  Sender: FDA-Public Use
  Company Number: US-ALCON LABORATORIES-ALC2023US003948

PATIENT

DRUGS (5)
  1. BETADINE [Suspect]
     Active Substance: POVIDONE-IODINE
     Indication: Product used for unknown indication
     Route: 047
  2. IBRANCE [Suspect]
     Active Substance: PALBOCICLIB
     Indication: Soft tissue sarcoma
     Dosage: 1 DOSAGE FORM, QD; FOR 21 DAYS THEN OFF FOR 7 DAYS
     Route: 048
     Dates: start: 20221212
  3. IBRANCE [Suspect]
     Active Substance: PALBOCICLIB
     Indication: Malignant connective tissue neoplasm
  4. PALBOCICLIB [Suspect]
     Active Substance: PALBOCICLIB
     Indication: Soft tissue sarcoma
     Dosage: 1 DOSAGE FORM, QD; FOR 21 DAYS THEN OFF FOR 7 DAYS
     Route: 048
  5. PALBOCICLIB [Suspect]
     Active Substance: PALBOCICLIB
     Indication: Malignant connective tissue neoplasm

REACTIONS (1)
  - Drug hypersensitivity [Unknown]
